FAERS Safety Report 18545898 (Version 1)
Quarter: 2020Q4

REPORT INFORMATION
  Report Type: Spontaneous
  Country: US (occurrence: US)
  Receive Date: 20201125
  Receipt Date: 20201125
  Transmission Date: 20210114
  Serious: Yes (Hospitalization)
  Sender: FDA-Public Use
  Company Number: None

PATIENT
  Sex: Male

DRUGS (23)
  1. CELLCEPT [Concomitant]
     Active Substance: MYCOPHENOLATE MOFETIL\MYCOPHENOLATE MOFETIL HYDROCHLORIDE
  2. KEFLEX [Concomitant]
     Active Substance: CEPHALEXIN
  3. ACYCLOVIR. [Concomitant]
     Active Substance: ACYCLOVIR
  4. AMBIEN [Concomitant]
     Active Substance: ZOLPIDEM TARTRATE
  5. PROCHLORPER [Concomitant]
  6. URSODIOL. [Concomitant]
     Active Substance: URSODIOL
  7. DEXTROSE. [Concomitant]
     Active Substance: DEXTROSE
  8. FLOMAX [Concomitant]
     Active Substance: TAMSULOSIN HYDROCHLORIDE
  9. GRANIX [Concomitant]
     Active Substance: TBO-FILGRASTIM
  10. LOSARTAN. [Concomitant]
     Active Substance: LOSARTAN
  11. PROTONIX [Concomitant]
     Active Substance: PANTOPRAZOLE SODIUM
  12. CYCLOSPORINE. [Suspect]
     Active Substance: CYCLOSPORINE
     Indication: ACUTE MYELOID LEUKAEMIA
     Route: 048
  13. CYCLOSPORINE. [Suspect]
     Active Substance: CYCLOSPORINE
     Indication: ACUTE MYELOID LEUKAEMIA
     Route: 048
  14. CYMBALTA [Concomitant]
     Active Substance: DULOXETINE HYDROCHLORIDE
  15. TRAMADOL. [Concomitant]
     Active Substance: TRAMADOL
  16. METFORMIN [Concomitant]
     Active Substance: METFORMIN HYDROCHLORIDE
  17. BENADRYL [Concomitant]
     Active Substance: DIPHENHYDRAMINE HYDROCHLORIDE
  18. CORTISONE [Concomitant]
     Active Substance: CORTISONE
  19. FLUCAGON [Concomitant]
  20. HUMALOG [Concomitant]
     Active Substance: INSULIN LISPRO
  21. LOPERAMIDE [Concomitant]
     Active Substance: LOPERAMIDE
  22. TYLENOL [Concomitant]
     Active Substance: ACETAMINOPHEN
  23. VORICAONAZOLE [Concomitant]

REACTIONS (1)
  - Bone marrow transplant [None]
